FAERS Safety Report 25058582 (Version 2)
Quarter: 2025Q1

REPORT INFORMATION
  Report Type: Spontaneous
  Country: AU (occurrence: AU)
  Receive Date: 20250310
  Receipt Date: 20250320
  Transmission Date: 20250409
  Serious: Yes (Life-Threatening, Other)
  Sender: TEVA
  Company Number: AU-TEVA-VS-3307283

PATIENT
  Sex: Male

DRUGS (1)
  1. OXYCODONE [Suspect]
     Active Substance: OXYCODONE
     Indication: Product used for unknown indication
     Route: 065

REACTIONS (1)
  - Anaphylactic reaction [Recovered/Resolved]
